FAERS Safety Report 25240615 (Version 5)
Quarter: 2025Q3

REPORT INFORMATION
  Report Type: Report from Study
  Country: US (occurrence: US)
  Receive Date: 20250425
  Receipt Date: 20250731
  Transmission Date: 20251021
  Serious: Yes (Hospitalization, Other)
  Sender: PFIZER
  Company Number: US-PFIZER INC-PV202400073389

PATIENT
  Age: 86 Year
  Sex: Female

DRUGS (17)
  1. VYNDAMAX [Suspect]
     Active Substance: TAFAMIDIS
     Indication: Amyloidosis
     Dosage: 61 MG : TAKE 1 CAPSULE BY MOUTH DAILY.
     Route: 048
     Dates: start: 20230302
  2. VYNDAMAX [Suspect]
     Active Substance: TAFAMIDIS
     Dosage: TAKE ONE 61MG CAP BY MOUTH DAILY
     Route: 048
  3. VITAMIN B COMPLEX WITH C [Concomitant]
     Active Substance: ASCORBIC ACID\CALCIUM PANTOTHENATE\CYANOCOBALAMIN\NIACINAMIDE\PYRIDOXINE HYDROCHLORIDE\RIBOFLAVIN\TH
  4. CALCIUM MAGNESIUM ZINC VITAMIN D3 [Concomitant]
  5. CETIRIZINE [Concomitant]
     Active Substance: CETIRIZINE HYDROCHLORIDE
  6. DULCOLAX (BISACODYL) [Concomitant]
     Active Substance: BISACODYL
  7. JUBLIA [Concomitant]
     Active Substance: EFINACONAZOLE
  8. HERBALS\TURMERIC [Concomitant]
     Active Substance: HERBALS\TURMERIC
  9. VITAMIN C [Concomitant]
     Active Substance: ASCORBIC ACID
  10. VITAMIN D3 [Concomitant]
     Active Substance: CHOLECALCIFEROL
  11. BIFIDOBACTERIUM ANIMALIS LACTIS [Concomitant]
     Active Substance: BIFIDOBACTERIUM ANIMALIS LACTIS
  12. VITAMIN B COMPLEX [Concomitant]
     Active Substance: CYANOCOBALAMIN\DEXPANTHENOL\NIACINAMIDE\PYRIDOXINE HYDROCHLORIDE\RIBOFLAVIN 5^-PHOSPHATE SODIUM\THIA
  13. CALCIUM MAGNESIUM ZINC [CALCIUM;MAGNESIUM;ZINC] [Concomitant]
  14. VITAMIN D NOS [Concomitant]
     Active Substance: CHOLECALCIFEROL\ERGOCALCIFEROL
  15. VITAMINS NOS [Concomitant]
     Active Substance: VITAMINS
  16. TORSEMIDE [Concomitant]
     Active Substance: TORSEMIDE
  17. HERBALS\TURMERIC [Concomitant]
     Active Substance: HERBALS\TURMERIC

REACTIONS (16)
  - Pneumonia [Unknown]
  - Pruritus [Not Recovered/Not Resolved]
  - Dehydration [Recovered/Resolved]
  - Vomiting [Recovered/Resolved]
  - Diarrhoea [Recovered/Resolved]
  - Dizziness postural [Not Recovered/Not Resolved]
  - Dizziness [Not Recovered/Not Resolved]
  - Dyspnoea [Not Recovered/Not Resolved]
  - Dry eye [Unknown]
  - Heart rate abnormal [Recovered/Resolved]
  - Heart rate irregular [Not Recovered/Not Resolved]
  - Headache [Not Recovered/Not Resolved]
  - Fatigue [Not Recovered/Not Resolved]
  - Alopecia [Not Recovered/Not Resolved]
  - COVID-19 [Unknown]
  - Respiratory disorder [Not Recovered/Not Resolved]

NARRATIVE: CASE EVENT DATE: 20230301
